FAERS Safety Report 9995056 (Version 1)
Quarter: 2014Q1

REPORT INFORMATION
  Report Type: Spontaneous
  Country: US (occurrence: None)
  Receive Date: 20140307
  Receipt Date: 20140307
  Transmission Date: 20141002
  Serious: Yes (Disabling, Other)
  Sender: FDA-Public Use
  Company Number: None

PATIENT
  Age: 71 Year
  Sex: Female

DRUGS (6)
  1. IBANDRONATE SODIUM [Suspect]
     Indication: OSTEOPOROSIS
     Route: 048
     Dates: start: 20120522, end: 20131209
  2. PANTOPRAZOLE [Concomitant]
  3. CALCIUM + VIT D [Concomitant]
  4. FISH OIL [Concomitant]
  5. D-DIMEN [Concomitant]
  6. TROPONIN [Concomitant]

REACTIONS (7)
  - Muscle spasms [None]
  - Muscle spasms [None]
  - Myalgia [None]
  - Hypoaesthesia oral [None]
  - Hypoaesthesia [None]
  - Hypoaesthesia [None]
  - Chest pain [None]
